FAERS Safety Report 7941205-2 (Version None)
Quarter: 2011Q4

REPORT INFORMATION
  Report Type: 
  Country: None (occurrence: None)
  Receive Date: 20111122
  Receipt Date: 20111110
  Transmission Date: 20120403
  Serious: Yes (Life-Threatening, Hospitalization, Other)
  Sender: FDA-Public Use
  Company Number: 2011MA003793

PATIENT
  Age: 62 Year
  Sex: Male
  Weight: 84.369 kg

DRUGS (46)
  1. METOCLOPRAMIDE [Suspect]
     Indication: GASTROOESOPHAGEAL REFLUX DISEASE
     Dosage: 10 MG;QID;PO
     Route: 048
     Dates: start: 19980527, end: 20110201
  2. METOCLOPRAMIDE [Suspect]
     Indication: HIATUS HERNIA
     Dosage: 10 MG;QID;PO
     Route: 048
     Dates: start: 19980527, end: 20110201
  3. METOCLOPRAMIDE [Suspect]
     Indication: OESOPHAGITIS
     Dosage: 10 MG;QID;PO
     Route: 048
     Dates: start: 19980527, end: 20110201
  4. CARAFATE [Concomitant]
  5. CARDURA [Concomitant]
  6. KUTRASE [Concomitant]
  7. LANTUS [Concomitant]
  8. NEXIUM [Concomitant]
  9. SOMA [Concomitant]
  10. ANTIVERT [Concomitant]
  11. BENICAR [Concomitant]
  12. LEVEMIR [Concomitant]
  13. NORCO [Concomitant]
  14. ACTIVASE [Concomitant]
  15. ACTOS [Concomitant]
  16. ASPIRIN [Concomitant]
  17. DEMADEX [Concomitant]
  18. FLOMAX [Concomitant]
  19. TOPROL-XL [Concomitant]
  20. REZULIN [Concomitant]
  21. VISTARIL [Concomitant]
  22. PHENERGAN [Concomitant]
  23. CELEXA [Concomitant]
  24. XODOL [Concomitant]
  25. ASPIRIN [Concomitant]
  26. JANUVIA [Concomitant]
  27. NITROGLYCERIN [Concomitant]
  28. GLUCOTROL [Concomitant]
  29. CEPHALEXIN [Concomitant]
  30. CILOSTAZOL [Concomitant]
  31. LISINOPRIL [Concomitant]
  32. PAROXETINE HCL [Concomitant]
  33. DARVOCET [Concomitant]
  34. VALIUM [Concomitant]
  35. TORADOL [Concomitant]
  36. NUBAIN [Concomitant]
  37. HYDROCODONE [Concomitant]
  38. INSULIN [Concomitant]
  39. PRANDIN [Concomitant]
  40. VYTORIN [Concomitant]
  41. ADALAT [Concomitant]
  42. HUMALOG [Concomitant]
  43. LUNESTA [Concomitant]
  44. METFORMIN HCL [Concomitant]
  45. PREVACID [Concomitant]
  46. SIMVASTATIN [Concomitant]

REACTIONS (44)
  - TARDIVE DYSKINESIA [None]
  - CHOREA [None]
  - FAMILY STRESS [None]
  - INTERVERTEBRAL DISC DISORDER [None]
  - DIABETES MELLITUS INADEQUATE CONTROL [None]
  - STARING [None]
  - VISION BLURRED [None]
  - CHEST DISCOMFORT [None]
  - EXERCISE TOLERANCE DECREASED [None]
  - DEPRESSION [None]
  - AREFLEXIA [None]
  - ACUTE MYOCARDIAL INFARCTION [None]
  - EXTRAPYRAMIDAL DISORDER [None]
  - HIATUS HERNIA [None]
  - BURSITIS [None]
  - HYPOREFLEXIA [None]
  - VIITH NERVE PARALYSIS [None]
  - NAUSEA [None]
  - EMOTIONAL DISORDER [None]
  - INJURY [None]
  - HYPERCHOLESTEROLAEMIA [None]
  - PROSTATIC DISORDER [None]
  - OEDEMA [None]
  - CARDIAC FAILURE CONGESTIVE [None]
  - IRRITABLE BOWEL SYNDROME [None]
  - VOMITING [None]
  - PAIN [None]
  - DIABETIC RETINOPATHY [None]
  - NEPHROPATHY [None]
  - ARTHRITIS [None]
  - DYSPNOEA [None]
  - MIGRAINE [None]
  - DIABETIC NEUROPATHY [None]
  - GASTROENTERITIS [None]
  - ELECTROENCEPHALOGRAM ABNORMAL [None]
  - CATARACT [None]
  - DIABETIC RETINAL OEDEMA [None]
  - CARDIOMEGALY [None]
  - ECONOMIC PROBLEM [None]
  - HEADACHE [None]
  - CEREBROVASCULAR ACCIDENT [None]
  - GASTROINTESTINAL OEDEMA [None]
  - LIPIDS INCREASED [None]
  - LEFT VENTRICULAR HYPERTROPHY [None]
